FAERS Safety Report 6965316-3 (Version None)
Quarter: 2010Q3

REPORT INFORMATION
  Report Type: 
  Country: None (occurrence: None)
  Receive Date: 20100901
  Receipt Date: 20100816
  Transmission Date: 20110219
  Serious: Yes (Hospitalization)
  Sender: FDA-Public Use
  Company Number: 10-082

PATIENT
  Age: 47 Year
  Sex: Female
  Weight: 58.9676 kg

DRUGS (1)
  1. BISACODYL [Suspect]
     Dosage: 1-3 TABLETS DAILY ORAL
     Route: 048
     Dates: start: 20100722

REACTIONS (6)
  - ABDOMINAL PAIN UPPER [None]
  - COLD SWEAT [None]
  - DYSPNOEA [None]
  - FEELING COLD [None]
  - MALAISE [None]
  - NAUSEA [None]
